FAERS Safety Report 9745340 (Version 1)
Quarter: 2013Q4

REPORT INFORMATION
  Report Type: Spontaneous
  Country: FR (occurrence: None)
  Receive Date: 20131204
  Receipt Date: 20131204
  Transmission Date: 20140711
  Serious: Yes (Hospitalization)
  Sender: FDA-Public Use
  Company Number: 7252189

PATIENT
  Age: 74 Year
  Sex: Female

DRUGS (6)
  1. DETENSIEL [Suspect]
     Indication: HYPERTENSION
     Route: 048
     Dates: end: 20130916
  2. LEVOTHYROXINE [Suspect]
     Indication: HYPOTHYROIDISM
     Route: 048
  3. COVERSYL [Suspect]
     Indication: HYPERTENSION
     Route: 048
     Dates: end: 20130916
  4. LASIX [Suspect]
     Indication: HYPERTENSION
     Route: 048
     Dates: end: 20130916
  5. OMEPRAZOLE [Suspect]
     Indication: PRODUCT USED FOR UNKNOWN INDICATION
     Route: 048
     Dates: end: 20130916
  6. DABIGATRAN ETEXILATE [Suspect]
     Indication: ATRIAL FIBRILLATION
     Dosage: 300 MG (150 MG, 2 IN 1 D)
     Route: 048
     Dates: start: 201303, end: 20130916

REACTIONS (8)
  - Acute myocardial infarction [None]
  - Rectal haemorrhage [None]
  - Cardiogenic shock [None]
  - Cardiac arrest [None]
  - Coronary artery disease [None]
  - Coronary artery stenosis [None]
  - Ventricular hypokinesia [None]
  - Normochromic normocytic anaemia [None]
